FAERS Safety Report 7049159-0 (Version None)
Quarter: 2010Q4

REPORT INFORMATION
  Report Type: 
  Country: None (occurrence: None)
  Receive Date: 20101018
  Receipt Date: 20101008
  Transmission Date: 20110411
  Serious: Yes (Hospitalization)
  Sender: FDA-Public Use
  Company Number: PHHO2010GB14686

PATIENT
  Sex: Male
  Weight: 63 kg

DRUGS (6)
  1. ZOLEDRONATE T29581+SOLINJ+BM [Suspect]
     Indication: METASTASES TO BONE
     Dosage: 4 MG
     Route: 042
     Dates: start: 20100406, end: 20100824
  2. CELECOXIB COMP-CEL+ [Suspect]
     Indication: METASTASES TO BONE
     Dosage: UNK
     Route: 048
     Dates: start: 20100406, end: 20100821
  3. LEUPROLIDE ACETATE [Concomitant]
     Dosage: UNK
  4. HORMONES [Concomitant]
  5. VITAMIN D [Concomitant]
  6. CALCIUM [Concomitant]

REACTIONS (8)
  - FLANK PAIN [None]
  - LYMPHADENOPATHY [None]
  - MALIGNANT NEOPLASM PROGRESSION [None]
  - METASTASES TO BLADDER [None]
  - NEPHROSTOMY [None]
  - OBSTRUCTIVE UROPATHY [None]
  - RENAL FAILURE ACUTE [None]
  - VOMITING [None]
